FAERS Safety Report 6007953-9 (Version None)
Quarter: 2008Q4

REPORT INFORMATION
  Report Type: 
  Country: None (occurrence: None)
  Receive Date: 20081215
  Receipt Date: 20081204
  Transmission Date: 20090506
  Serious: Yes (Death, Hospitalization)
  Sender: FDA-Public Use
  Company Number: 2008SP024882

PATIENT
  Age: 81 Year
  Sex: Male

DRUGS (9)
  1. DIAFUSOR       (GLYCERYL TRINITRATE [Suspect]
     Dosage: 10 MG; QD; CUT
  2. BACTRIM [Suspect]
     Indication: NOCARDIOSIS
     Dosage: 2 QDL
  3. KARDEGIC 75 (KARDEGIC) [Suspect]
     Dosage: 75 MG; QD
  4. NEXIUM [Suspect]
     Dosage: 20 MG; QD
  5. LASILIX FAIBLE (FUROPSEMIDE) [Suspect]
     Dosage: QD
  6. MONO TILDEM LP 300 (DILTIAZEM HYDROCHLOROIDE) [Suspect]
     Dosage: 300 MG; QD
  7. TRANXENE [Concomitant]
  8. XATRAL [Concomitant]
  9. PERMIXON [Concomitant]

REACTIONS (3)
  - AGRANULOCYTOSIS [None]
  - PSEUDOMONAL SEPSIS [None]
  - RESPIRATORY FAILURE [None]
